FAERS Safety Report 11112555 (Version 2)
Quarter: 2015Q2

REPORT INFORMATION
  Report Type: Spontaneous
  Country: US (occurrence: US)
  Receive Date: 20150514
  Receipt Date: 20150514
  Transmission Date: 20150821
  Serious: Yes (Death, Other)
  Sender: FDA-Public Use
  Company Number: US-ASTRAZENECA-2015SE43670

PATIENT
  Age: 14900 Day
  Sex: Male

DRUGS (33)
  1. CYMBALTA [Concomitant]
     Active Substance: DULOXETINE HYDROCHLORIDE
     Dates: start: 20090717
  2. BUPROPION [Concomitant]
     Active Substance: BUPROPION
     Dates: start: 20090717
  3. CLARINEX [Concomitant]
     Active Substance: DESLORATADINE
     Dates: start: 20090717
  4. PREDNISONE. [Concomitant]
     Active Substance: PREDNISONE
     Dates: start: 20100331
  5. EMEND [Concomitant]
     Active Substance: APREPITANT
     Dates: start: 20100823
  6. OXYCODONE HCL [Concomitant]
     Active Substance: OXYCODONE HYDROCHLORIDE
     Dates: start: 20100903
  7. OXYCONTIN [Concomitant]
     Active Substance: OXYCODONE HYDROCHLORIDE
     Dates: start: 20110505
  8. DEXAMETHASONE. [Concomitant]
     Active Substance: DEXAMETHASONE
     Dates: start: 20120514
  9. PROMETHAZINE [Concomitant]
     Active Substance: PROMETHAZINE\PROMETHAZINE HYDROCHLORIDE
     Dates: start: 20110114
  10. NEXIUM [Concomitant]
     Active Substance: ESOMEPRAZOLE MAGNESIUM
     Dates: start: 20120120
  11. AMBIEN [Concomitant]
     Active Substance: ZOLPIDEM TARTRATE
     Dates: start: 20090725
  12. OMEPRAZOLE. [Concomitant]
     Active Substance: OMEPRAZOLE
     Dates: start: 20100408
  13. VITAMIN D [Concomitant]
     Active Substance: CHOLECALCIFEROL
     Dates: start: 20100421
  14. ONDANSETRON [Concomitant]
     Active Substance: ONDANSETRON
     Dates: start: 20100922
  15. DIPHENOXYLATE [Concomitant]
     Active Substance: DIPHENOXYLATE
     Dates: start: 20101208
  16. BYETTA [Suspect]
     Active Substance: EXENATIDE
     Route: 065
     Dates: start: 20100203
  17. PROVIGIL [Concomitant]
     Active Substance: MODAFINIL
     Dates: start: 20090717
  18. URSODIOL. [Concomitant]
     Active Substance: URSODIOL
     Dates: start: 20100327
  19. ZALEPLON. [Concomitant]
     Active Substance: ZALEPLON
     Dates: start: 20100823
  20. FAMOTIDINE. [Concomitant]
     Active Substance: FAMOTIDINE
     Dates: start: 20090626
  21. GEMFIBROZIL. [Concomitant]
     Active Substance: GEMFIBROZIL
     Dates: start: 20090717
  22. METFORMIN HCL [Concomitant]
     Active Substance: METFORMIN HYDROCHLORIDE
     Dates: start: 20090717
  23. GABAPENTIN. [Concomitant]
     Active Substance: GABAPENTIN
     Dates: start: 20111012
  24. NIASPAN [Concomitant]
     Active Substance: NIACIN
     Dates: start: 20090717
  25. METRONIDAZOLE. [Concomitant]
     Active Substance: METRONIDAZOLE
     Dates: start: 20100421
  26. NOVOLOG [Concomitant]
     Active Substance: INSULIN ASPART
     Dates: start: 20110430
  27. LANTUS SOLOSTAR [Concomitant]
     Active Substance: INSULIN GLARGINE
     Dates: start: 20110610
  28. SPIRONOLACTONE. [Concomitant]
     Active Substance: SPIRONOLACTONE
     Dates: start: 20120219
  29. BYETTA [Suspect]
     Active Substance: EXENATIDE
     Route: 065
     Dates: start: 20091001
  30. BYETTA [Suspect]
     Active Substance: EXENATIDE
     Route: 065
     Dates: start: 20100501
  31. LOVAZA [Concomitant]
     Active Substance: OMEGA-3-ACID ETHYL ESTERS
     Dates: start: 20090701
  32. LORAZEPAM. [Concomitant]
     Active Substance: LORAZEPAM
     Dates: start: 20100816
  33. LEVAQUIN [Concomitant]
     Active Substance: LEVOFLOXACIN
     Dates: start: 20110503

REACTIONS (2)
  - Metastases to liver [Unknown]
  - Pancreatic carcinoma metastatic [Fatal]

NARRATIVE: CASE EVENT DATE: 20100513
